FAERS Safety Report 21276115 (Version 1)
Quarter: 2022Q3

REPORT INFORMATION
  Report Type: Spontaneous
  Country: US (occurrence: US)
  Receive Date: 20220831
  Receipt Date: 20220831
  Transmission Date: 20221027
  Serious: No
  Sender: FDA-Public Use
  Company Number: US-ABBVIE-22K-163-4395621-00

PATIENT
  Sex: Female
  Weight: 93.44 kg

DRUGS (2)
  1. HUMIRA [Suspect]
     Active Substance: ADALIMUMAB
     Indication: Arthritis
     Route: 058
     Dates: start: 2019, end: 202112
  2. XELJANZ [Suspect]
     Active Substance: TOFACITINIB CITRATE
     Indication: Arthritis
     Dosage: 5MG TWICE A DAY, ONE IN THE MORNING AND ONE IN THE EVENING
     Route: 048
     Dates: end: 202112

REACTIONS (4)
  - Gait disturbance [Unknown]
  - Weight increased [Unknown]
  - Arthritis [Unknown]
  - Drug ineffective [Unknown]
